FAERS Safety Report 15670626 (Version 2)
Quarter: 2018Q4

REPORT INFORMATION
  Report Type: Spontaneous
  Country: US (occurrence: US)
  Receive Date: 20181129
  Receipt Date: 20181220
  Transmission Date: 20190205
  Serious: Yes (Hospitalization)
  Sender: FDA-Public Use
  Company Number: US-BAUSCH-BL-2018-032492

PATIENT
  Age: 87 Year
  Sex: Male

DRUGS (4)
  1. CARBIDOPA. [Suspect]
     Active Substance: CARBIDOPA
     Indication: PRODUCT USED FOR UNKNOWN INDICATION
     Route: 065
     Dates: end: 201810
  2. GOCOVRI [Suspect]
     Active Substance: AMANTADINE
     Dosage: AT BED TIME
     Route: 048
     Dates: start: 20181019, end: 201810
  3. AMANTADINE IR [Suspect]
     Active Substance: AMANTADINE HYDROCHLORIDE
     Indication: PRODUCT USED FOR UNKNOWN INDICATION
     Route: 065
  4. GOCOVRI [Suspect]
     Active Substance: AMANTADINE
     Indication: DYSKINESIA
     Dosage: AT BED TIME
     Route: 048
     Dates: start: 20181012, end: 20181018

REACTIONS (4)
  - Therapy cessation [Not Recovered/Not Resolved]
  - Visual impairment [Unknown]
  - Fall [Unknown]
  - Hallucination [Unknown]

NARRATIVE: CASE EVENT DATE: 201810
